FAERS Safety Report 7436670-3 (Version None)
Quarter: 2011Q1

REPORT INFORMATION
  Report Type: 
  Country: None (occurrence: None)
  Receive Date: 20110302
  Receipt Date: 20101228
  Transmission Date: 20110831
  Serious: No
  Sender: FDA-Public Use
  Company Number: 022024

PATIENT
  Sex: Female

DRUGS (6)
  1. CIMZIA [Suspect]
     Indication: CROHN'S DISEASE
     Dosage: 400 MG WEEK 0, 2, + 4 SUBCUTANEOUS
     Route: 058
     Dates: start: 20100901
  2. ZOLOFT [Concomitant]
  3. LIPITOR [Concomitant]
  4. PLAVIX [Concomitant]
  5. INSULIN [Concomitant]
  6. ZESTRIL [Concomitant]

REACTIONS (4)
  - ABDOMINAL PAIN [None]
  - INAPPROPRIATE SCHEDULE OF DRUG ADMINISTRATION [None]
  - FISTULA [None]
  - EAR INFECTION [None]
